FAERS Safety Report 5843205-5 (Version None)
Quarter: 2008Q3

REPORT INFORMATION
  Report Type: 
  Country: None (occurrence: None)
  Receive Date: 20080813
  Receipt Date: 20080804
  Transmission Date: 20090109
  Serious: Yes (Hospitalization)
  Sender: FDA-Public Use
  Company Number: PHHY2008US16922

PATIENT
  Sex: Female
  Weight: 69.841 kg

DRUGS (1)
  1. EXJADE [Suspect]
     Indication: SICKLE CELL ANAEMIA
     Dosage: 1250 MG, QD
     Route: 048
     Dates: start: 20080619, end: 20080722

REACTIONS (2)
  - BLOOD COUNT ABNORMAL [None]
  - ULCER HAEMORRHAGE [None]
